FAERS Safety Report 12448830 (Version 4)
Quarter: 2016Q3

REPORT INFORMATION
  Report Type: Report from Study
  Country: US (occurrence: US)
  Receive Date: 20160608
  Receipt Date: 20160826
  Transmission Date: 20161109
  Serious: Yes (Other)
  Sender: FDA-Public Use
  Company Number: PHEH2016US013587

PATIENT
  Age: 79 Year
  Sex: Male
  Weight: 69.5 kg

DRUGS (4)
  1. ENTRESTO [Suspect]
     Active Substance: SACUBITRIL\VALSARTAN
     Indication: EJECTION FRACTION DECREASED
     Dosage: 50 MG, BID
     Route: 048
     Dates: start: 20160506
  2. ENTRESTO [Suspect]
     Active Substance: SACUBITRIL\VALSARTAN
     Indication: CHRONIC OBSTRUCTIVE PULMONARY DISEASE
     Dosage: 50 MG, QD
     Route: 048
  3. FUROSEMIDE. [Suspect]
     Active Substance: FUROSEMIDE
     Indication: EJECTION FRACTION DECREASED
     Dosage: 40 OT, QD
     Route: 048
     Dates: start: 20160414
  4. SPIRONOLACTONE. [Suspect]
     Active Substance: SPIRONOLACTONE
     Indication: EJECTION FRACTION DECREASED
     Dosage: 50 OT, QD
     Route: 048
     Dates: start: 20160414, end: 20160620

REACTIONS (11)
  - Abdominal pain upper [Unknown]
  - Nausea [Unknown]
  - Diarrhoea haemorrhagic [Recovered/Resolved]
  - Decreased appetite [Unknown]
  - Ocular discomfort [Unknown]
  - Hypoacusis [Unknown]
  - Bone pain [Unknown]
  - Headache [Unknown]
  - Prescribed underdose [Unknown]
  - Fatigue [Unknown]
  - Dizziness [Unknown]

NARRATIVE: CASE EVENT DATE: 20160510
